FAERS Safety Report 6739324-1 (Version None)
Quarter: 2010Q2

REPORT INFORMATION
  Report Type: 
  Country: None (occurrence: None)
  Receive Date: 20100517
  Receipt Date: 20090429
  Transmission Date: 20101027
  Serious: Yes (Hospitalization)
  Sender: FDA-Public Use
  Company Number: SPV1-2009-00843

PATIENT
  Age: 76 Year
  Sex: Female
  Weight: 98.9 kg

DRUGS (2)
  1. FOSRENOL [Suspect]
     Indication: NEPHROPATHY
     Dosage: ORAL
     Route: 048
     Dates: start: 20090101, end: 20090101
  2. TRAMADOL HCL [Concomitant]

REACTIONS (3)
  - HYPOAESTHESIA [None]
  - MEDICAL DEVICE COMPLICATION [None]
  - NAUSEA [None]
